FAERS Safety Report 7773942-7 (Version None)
Quarter: 2011Q3

REPORT INFORMATION
  Report Type: 
  Country: None (occurrence: None)
  Receive Date: 20110923
  Receipt Date: 20110920
  Transmission Date: 20111222
  Serious: Yes (Death, Other)
  Sender: FDA-Public Use
  Company Number: US-B.I. PHARMACEUTICALS,INC./RIDGEFIELD-2011-BP-22624BP

PATIENT
  Sex: Male

DRUGS (1)
  1. SPIRIVA [Suspect]

REACTIONS (5)
  - HEPATITIS C [None]
  - GENERALISED OEDEMA [None]
  - HEPATIC NEOPLASM MALIGNANT [None]
  - OBESITY [None]
  - ACUTE RESPIRATORY FAILURE [None]
